FAERS Safety Report 23783087 (Version 2)
Quarter: 2024Q2

REPORT INFORMATION
  Report Type: Spontaneous
  Country: US (occurrence: US)
  Receive Date: 20240425
  Receipt Date: 20240506
  Transmission Date: 20240716
  Serious: No
  Sender: FDA-Public Use
  Company Number: US-TEVA-VS-3181388

PATIENT
  Age: 80 Year
  Sex: Female

DRUGS (1)
  1. MUPIROCIN [Suspect]
     Active Substance: MUPIROCIN
     Indication: Wound
     Dosage: TIME INTERVAL: 0.33333333 DAYS
     Route: 061
     Dates: start: 202404

REACTIONS (3)
  - Application site pain [Unknown]
  - Product prescribing issue [Unknown]
  - Application site erythema [Unknown]

NARRATIVE: CASE EVENT DATE: 20240401
